FAERS Safety Report 10921349 (Version 3)
Quarter: 2015Q3

REPORT INFORMATION
  Report Type: Spontaneous
  Country: SE (occurrence: SE)
  Receive Date: 20150317
  Receipt Date: 20150824
  Transmission Date: 20151125
  Serious: Yes (Other)
  Sender: FDA-Public Use
  Company Number: SE-ROCHE-1551452

PATIENT
  Sex: Female

DRUGS (2)
  1. XOLAIR [Suspect]
     Active Substance: OMALIZUMAB
     Route: 065
     Dates: start: 20150302
  2. XOLAIR [Suspect]
     Active Substance: OMALIZUMAB
     Indication: CHRONIC SPONTANEOUS URTICARIA
     Route: 065

REACTIONS (8)
  - Maternal exposure during pregnancy [Unknown]
  - Diarrhoea [Unknown]
  - Hyperhidrosis [Unknown]
  - Asthma [Unknown]
  - Abortion spontaneous [Unknown]
  - Pyrexia [Unknown]
  - Chills [Unknown]
  - Chest pain [Unknown]
